FAERS Safety Report 9356540 (Version 2)
Quarter: 2013Q3

REPORT INFORMATION
  Report Type: Spontaneous
  Country: US (occurrence: US)
  Receive Date: 20130619
  Receipt Date: 20130723
  Transmission Date: 20140515
  Serious: Yes (Other)
  Sender: FDA-Public Use
  Company Number: US-TEVA-413094USA

PATIENT
  Sex: Male

DRUGS (5)
  1. AZILECT [Suspect]
     Dates: start: 20130214, end: 201305
  2. AZILECT [Suspect]
     Dates: start: 2013
  3. PLAVIX [Suspect]
     Dates: start: 201206, end: 201305
  4. ASPIRIN [Suspect]
     Dates: start: 1980, end: 201305
  5. ASPIRIN [Suspect]
     Dates: start: 2013

REACTIONS (1)
  - Gastrointestinal haemorrhage [Recovered/Resolved]
